FAERS Safety Report 8211791-6 (Version None)
Quarter: 2012Q1

REPORT INFORMATION
  Report Type: 
  Country: None (occurrence: None)
  Receive Date: 20120229
  Receipt Date: 20110909
  Transmission Date: 20120608
  Serious: Yes (Hospitalization)
  Sender: FDA-Public Use
  Company Number: PHEH2011US03799

PATIENT
  Age: 88 Year
  Sex: Female

DRUGS (7)
  1. TEGRETOL [Suspect]
  2. MORPHINE [Suspect]
  3. ANTACIDS (NO INGREDIENTS/SUBSTANCES) [Concomitant]
  4. SULFUR (SULFUR) [Suspect]
  5. NOVOCAIN [Suspect]
  6. PREDNISONE [Suspect]
  7. TETANUS (TETANUS ANTITOXIN) [Suspect]

REACTIONS (1)
  - DRUG HYPERSENSITIVITY [None]
